FAERS Safety Report 9852431 (Version 3)
Quarter: 2014Q2

REPORT INFORMATION
  Report Type: Spontaneous
  Country: US (occurrence: US)
  Receive Date: 20140129
  Receipt Date: 20140408
  Transmission Date: 20141212
  Serious: Yes (Hospitalization, Other)
  Sender: FDA-Public Use
  Company Number: US-BAYER-2014-013315

PATIENT
  Age: 82 Year
  Sex: Male

DRUGS (1)
  1. GADAVIST [Suspect]
     Indication: NECK MASS
     Dosage: 10 ML, ONCE
     Route: 042
     Dates: start: 20140117, end: 20140117

REACTIONS (3)
  - Unresponsive to stimuli [None]
  - Bradycardia [None]
  - Pruritus [None]
